FAERS Safety Report 24280778 (Version 1)
Quarter: 2024Q3

REPORT INFORMATION
  Report Type: Report from Study
  Country: BR (occurrence: BR)
  Receive Date: 20240904
  Receipt Date: 20240904
  Transmission Date: 20241017
  Serious: Yes (Other)
  Sender: CHIESI
  Company Number: BR-CHIESI-2024CHF05402

PATIENT

DRUGS (3)
  1. CUROSURF [Suspect]
     Active Substance: PORACTANT ALFA
     Indication: Neonatal respiratory distress syndrome
     Dosage: 200 MILLIGRAM/KILOGRAM
  2. CUROSURF [Suspect]
     Active Substance: PORACTANT ALFA
     Dosage: 150 MILLIGRAM/KILOGRAM
  3. CAFFEINE [Concomitant]
     Active Substance: CAFFEINE
     Indication: Product used for unknown indication
     Dosage: UNK

REACTIONS (3)
  - Bronchopulmonary dysplasia [Unknown]
  - Prescribed overdose [Unknown]
  - Off label use [Unknown]
